FAERS Safety Report 15095614 (Version 1)
Quarter: 2018Q3

REPORT INFORMATION
  Report Type: Spontaneous
  Country: US (occurrence: US)
  Receive Date: 20180702
  Receipt Date: 20180702
  Transmission Date: 20181010
  Serious: No
  Sender: FDA-Public Use
  Company Number: US-ASTRAZENECA-2018SE81640

PATIENT
  Age: 50 Year
  Sex: Female

DRUGS (6)
  1. SEROQUEL [Suspect]
     Active Substance: QUETIAPINE FUMARATE
     Indication: SCHIZOPHRENIA
     Dosage: GENERIC SEROQUEL
     Route: 065
  2. SEROQUEL [Suspect]
     Active Substance: QUETIAPINE FUMARATE
     Indication: PSYCHOTIC DISORDER
     Route: 048
  3. SEROQUEL [Suspect]
     Active Substance: QUETIAPINE FUMARATE
     Indication: SCHIZOPHRENIA
     Route: 048
  4. SEROQUEL [Suspect]
     Active Substance: QUETIAPINE FUMARATE
     Indication: SCHIZOPHRENIA
     Route: 048
  5. SEROQUEL [Suspect]
     Active Substance: QUETIAPINE FUMARATE
     Indication: PSYCHOTIC DISORDER
     Route: 048
  6. SEROQUEL [Suspect]
     Active Substance: QUETIAPINE FUMARATE
     Indication: PSYCHOTIC DISORDER
     Dosage: GENERIC SEROQUEL
     Route: 065

REACTIONS (9)
  - Hallucination [Recovered/Resolved]
  - Feeling abnormal [Unknown]
  - Hallucination, auditory [Recovered/Resolved]
  - Diplopia [Unknown]
  - Visual impairment [Unknown]
  - Malaise [Unknown]
  - Rash [Unknown]
  - Vision blurred [Unknown]
  - Hallucination, visual [Unknown]

NARRATIVE: CASE EVENT DATE: 2018
